FAERS Safety Report 6265600-5 (Version None)
Quarter: 2009Q3

REPORT INFORMATION
  Report Type: 
  Country: None (occurrence: None)
  Receive Date: 20090709
  Receipt Date: 20090709
  Transmission Date: 20100115
  Serious: Yes (Hospitalization)
  Sender: FDA-Public Use
  Company Number: None

PATIENT
  Age: 54 Year
  Sex: Female
  Weight: 85.7298 kg

DRUGS (18)
  1. DAPTOMYCIN 1100 MG [Suspect]
     Indication: INFLAMMATION
     Dosage: 1100 MG DAILY IV
     Route: 042
     Dates: start: 20090618, end: 20090621
  2. DAPTOMYCIN 1100 MG [Suspect]
     Indication: SPINAL DISORDER
     Dosage: 1100 MG DAILY IV
     Route: 042
     Dates: start: 20090618, end: 20090621
  3. INSULIN LISPRO [Concomitant]
  4. ENALAPRIL MALEATE [Concomitant]
  5. METOPROLOL TARTRATE [Concomitant]
  6. HALOPERIDOL LACTATE [Concomitant]
  7. SILVER SULFADIAZINE [Concomitant]
  8. ACETAMINOPHEN SUPP [Concomitant]
  9. SODIUM CHLORIDE [Concomitant]
  10. NITROGLYCERIN [Concomitant]
  11. ALUMINUM MAG ANTACID [Concomitant]
  12. ACETAMINOPHEN [Concomitant]
  13. DOCUSATE SODIUM [Concomitant]
  14. MAGNESIUM HYDROXIDE TAB [Concomitant]
  15. LEVOTHYROXINE SODIUM [Concomitant]
  16. NYSTATIN [Concomitant]
  17. ENOXAPARIN SODIUM [Concomitant]
  18. IPRATROPIUM BROMIDE [Concomitant]

REACTIONS (8)
  - CONDITION AGGRAVATED [None]
  - CONFUSIONAL STATE [None]
  - DEPRESSED LEVEL OF CONSCIOUSNESS [None]
  - FASCIITIS [None]
  - LETHARGY [None]
  - MENTAL DISORDER [None]
  - MOVEMENT DISORDER [None]
  - RENAL FAILURE ACUTE [None]
